FAERS Safety Report 6992172-X (Version None)
Quarter: 2010Q3

REPORT INFORMATION
  Report Type: 
  Country: None (occurrence: None)
  Receive Date: 20100917
  Receipt Date: 20100713
  Transmission Date: 20110219
  Serious: No
  Sender: FDA-Public Use
  Company Number: A0870201A

PATIENT
  Sex: Male

DRUGS (3)
  1. PROMACTA [Suspect]
     Indication: IDIOPATHIC THROMBOCYTOPENIC PURPURA
     Dosage: 50MG PER DAY
     Route: 048
     Dates: start: 20100101
  2. BLOOD PRESSURE MEDICATION [Concomitant]
  3. PREDNISONE [Concomitant]

REACTIONS (5)
  - ARTHROPOD BITE [None]
  - FATIGUE [None]
  - LOCAL SWELLING [None]
  - OCULAR HYPERAEMIA [None]
  - SWELLING FACE [None]
